FAERS Safety Report 5040278-7 (Version None)
Quarter: 2006Q2

REPORT INFORMATION
  Report Type: 
  Country: None (occurrence: None)
  Receive Date: 20060630
  Receipt Date: 20060623
  Transmission Date: 20061013
  Serious: Yes (Other)
  Sender: FDA-Public Use
  Company Number: US-JNJFOC-20060605485

PATIENT
  Sex: Female
  Weight: 77.11 kg

DRUGS (5)
  1. RISPERDAL [Suspect]
     Indication: SELF MUTILATION
     Route: 048
  2. RISPERDAL [Suspect]
     Indication: BIPOLAR DISORDER
     Route: 048
  3. LIPITOR [Concomitant]
     Indication: BLOOD CHOLESTEROL
  4. PREDNISONE [Concomitant]
     Route: 048
  5. PREDNISONE [Concomitant]
     Indication: RENAL DISORDER
     Route: 048

REACTIONS (2)
  - CATATONIA [None]
  - GLOMERULONEPHRITIS PROLIFERATIVE [None]
